FAERS Safety Report 12169525 (Version 1)
Quarter: 2016Q1

REPORT INFORMATION
  Report Type: Report from Study
  Country: US (occurrence: US)
  Receive Date: 20160310
  Receipt Date: 20160310
  Transmission Date: 20160526
  Serious: Yes (Other)
  Sender: FDA-Public Use
  Company Number: US-ACTELION-A-US2016-132435

PATIENT
  Age: 68 Year
  Sex: Female

DRUGS (7)
  1. EXJADE [Concomitant]
     Active Substance: DEFERASIROX
  2. RIOCIGUAT [Concomitant]
     Active Substance: RIOCIGUAT
  3. JAKAFI [Concomitant]
     Active Substance: RUXOLITINIB
  4. MACITENTAN [Suspect]
     Active Substance: MACITENTAN
     Indication: PULMONARY ARTERIAL HYPERTENSION
     Dosage: 10 MG, QD
     Route: 048
     Dates: start: 20140619
  5. METHADONE [Concomitant]
     Active Substance: METHADONE HYDROCHLORIDE
  6. OXYCODONE [Concomitant]
     Active Substance: OXYCODONE
  7. LOVENOX [Concomitant]
     Active Substance: ENOXAPARIN SODIUM

REACTIONS (3)
  - Bone pain [Not Recovered/Not Resolved]
  - Neoplasm malignant [Not Recovered/Not Resolved]
  - Pain [Not Recovered/Not Resolved]

NARRATIVE: CASE EVENT DATE: 20160104
